FAERS Safety Report 12824109 (Version 2)
Quarter: 2016Q4

REPORT INFORMATION
  Report Type: Spontaneous
  Country: US (occurrence: US)
  Receive Date: 20161007
  Receipt Date: 20161118
  Transmission Date: 20170207
  Serious: Yes (Death, Life-Threatening, Hospitalization, Other)
  Sender: FDA-Public Use
  Company Number: US-BRISTOL-MYERS SQUIBB COMPANY-BMS-2016-082499

PATIENT
  Age: 70 Year
  Sex: Male

DRUGS (5)
  1. YERVOY [Suspect]
     Active Substance: IPILIMUMAB
     Indication: METASTASES TO LIVER
     Dosage: 3 MG/KG, UNK
     Route: 042
     Dates: start: 20160728
  2. OPDIVO [Suspect]
     Active Substance: NIVOLUMAB
     Indication: INTRAOCULAR MELANOMA
     Dosage: 1 MG/KG, UNK
     Route: 042
     Dates: start: 20160707
  3. OPDIVO [Suspect]
     Active Substance: NIVOLUMAB
     Indication: METASTASES TO LIVER
     Dosage: 1 MG/KG, UNK
     Route: 042
     Dates: start: 20160728
  4. METHIMAZOLE. [Concomitant]
     Active Substance: METHIMAZOLE
     Indication: HYPERTHYROIDISM
     Route: 065
  5. YERVOY [Suspect]
     Active Substance: IPILIMUMAB
     Indication: INTRAOCULAR MELANOMA
     Dosage: 3 MG/KG, UNK
     Route: 042
     Dates: start: 20160707

REACTIONS (7)
  - Staphylococcal bacteraemia [Fatal]
  - Hyperthyroidism [Unknown]
  - Jaundice [Unknown]
  - Sepsis [Fatal]
  - Rash erythematous [Unknown]
  - Coagulopathy [Unknown]
  - Respiratory failure [Fatal]

NARRATIVE: CASE EVENT DATE: 20160815
